FAERS Safety Report 6452480-8 (Version None)
Quarter: 2009Q4

REPORT INFORMATION
  Report Type: 
  Country: None (occurrence: None)
  Receive Date: 20091123
  Receipt Date: 20090212
  Transmission Date: 20100525
  Serious: No
  Sender: FDA-Public Use
  Company Number: US-AMGEN-KDL333662

PATIENT
  Sex: Female

DRUGS (3)
  1. ENBREL [Suspect]
     Indication: RHEUMATOID ARTHRITIS
     Route: 058
     Dates: start: 20080501, end: 20081120
  2. METHOTREXATE [Concomitant]
     Route: 048
  3. SULFASALAZINE [Concomitant]
     Route: 048

REACTIONS (1)
  - PRURITUS [None]
